FAERS Safety Report 8357860-1 (Version None)
Quarter: 2012Q2

REPORT INFORMATION
  Report Type: 
  Country: None (occurrence: None)
  Receive Date: 20120511
  Receipt Date: 20120426
  Transmission Date: 20120825
  Serious: Yes (Hospitalization)
  Sender: FDA-Public Use
  Company Number: PHEN20120007

PATIENT
  Age: 24 Year
  Sex: Female
  Weight: 95.2554 kg

DRUGS (1)
  1. PHENTERMINE HCL [Suspect]
     Indication: OBESITY

REACTIONS (8)
  - PRURITUS GENERALISED [None]
  - PAIN [None]
  - PANNICULITIS [None]
  - ERYTHEMA [None]
  - PYREXIA [None]
  - MYALGIA [None]
  - ARTHRALGIA [None]
  - FATIGUE [None]
